FAERS Safety Report 9565545 (Version 1)
Quarter: 2013Q3

REPORT INFORMATION
  Report Type: Spontaneous
  Country: US (occurrence: US)
  Receive Date: 20130930
  Receipt Date: 20130930
  Transmission Date: 20140515
  Serious: No
  Sender: FDA-Public Use
  Company Number: US-PFIZER INC-2013275953

PATIENT
  Age: 64 Year
  Sex: Female
  Weight: 109 kg

DRUGS (4)
  1. ALPRAZOLAM [Suspect]
     Indication: ANXIETY
     Dosage: 1 MG, 3X/DAY
     Route: 048
     Dates: start: 2006, end: 2006
  2. ALPRAZOLAM [Suspect]
     Dosage: 1 MG, AS NEEDED
     Route: 048
     Dates: start: 2006
  3. ESCITALOPRAM [Concomitant]
     Indication: DEPRESSION
     Dosage: UNK
  4. LEVOTHYROXINE [Concomitant]
     Dosage: UNK

REACTIONS (1)
  - Amnesia [Not Recovered/Not Resolved]
